FAERS Safety Report 20829622 (Version 3)
Quarter: 2023Q1

REPORT INFORMATION
  Report Type: Spontaneous
  Country: CA (occurrence: CA)
  Receive Date: 20220513
  Receipt Date: 20230103
  Transmission Date: 20230418
  Serious: Yes (Death, Other)
  Sender: FDA-Public Use
  Company Number: CA-PFIZER INC-202200677186

PATIENT
  Age: 82 Year
  Sex: Male
  Weight: 90.2 kg

DRUGS (7)
  1. VYNDAQEL [Suspect]
     Active Substance: TAFAMIDIS MEGLUMINE
     Indication: Cardiac amyloidosis
     Dosage: TAKE 4 CAPSULES (80MG) ONCE DAILY
     Route: 048
     Dates: start: 20211210
  2. VYNDAQEL [Suspect]
     Active Substance: TAFAMIDIS MEGLUMINE
     Indication: Cardiomyopathy
  3. DULOXETINE [Concomitant]
     Active Substance: DULOXETINE
     Dosage: 60 MG, 1X/DAY
     Route: 065
     Dates: start: 20210408
  4. FUROSEMIDE [Concomitant]
     Active Substance: FUROSEMIDE
     Dosage: 80 MG, 1X/DAY
     Route: 065
     Dates: start: 20210408
  5. HYDROMORPHONE [Concomitant]
     Active Substance: HYDROMORPHONE
     Dosage: 2 MG, 1X/DAY
     Route: 065
     Dates: start: 20210408
  6. METOPROLOL [Concomitant]
     Active Substance: METOPROLOL
     Dosage: 26 MG, 2X/DAY
     Route: 065
     Dates: start: 20210408
  7. TAMSULOSIN [Concomitant]
     Active Substance: TAMSULOSIN
     Dosage: 0.4 MG, 1X/DAY
     Route: 065
     Dates: start: 20210408

REACTIONS (7)
  - Death [Fatal]
  - Urinary retention [Unknown]
  - Haematuria [Unknown]
  - Dizziness [Unknown]
  - Dysstasia [Unknown]
  - Weight increased [Unknown]
  - Venous pressure jugular decreased [Unknown]

NARRATIVE: CASE EVENT DATE: 20220218
